FAERS Safety Report 8277319-X (Version None)
Quarter: 2012Q2

REPORT INFORMATION
  Report Type: 
  Country: None (occurrence: None)
  Receive Date: 20120412
  Receipt Date: 20120404
  Transmission Date: 20120825
  Serious: Yes (Other)
  Sender: FDA-Public Use
  Company Number: JP-GLAXOSMITHKLINE-B0792384A

PATIENT

DRUGS (2)
  1. LAMICTAL [Suspect]
     Route: 048
  2. LAMICTAL [Suspect]
     Indication: BIPOLAR DISORDER
     Dosage: 25MG PER DAY
     Route: 048
     Dates: start: 20111101

REACTIONS (3)
  - AGGRESSION [None]
  - WITHDRAWAL SYNDROME [None]
  - IRRITABILITY [None]
